FAERS Safety Report 6897467-6 (Version None)
Quarter: 2010Q3

REPORT INFORMATION
  Report Type: 
  Country: None (occurrence: None)
  Receive Date: 20100802
  Receipt Date: 20070601
  Transmission Date: 20110219
  Serious: Yes (Other)
  Sender: FDA-Public Use
  Company Number: US-PFIZER INC-2007028189

PATIENT
  Sex: Male
  Weight: 78 kg

DRUGS (4)
  1. LYRICA [Suspect]
     Indication: PAIN
     Route: 048
     Dates: start: 20070101, end: 20070525
  2. HYDROCODONE BITARTRATE [Concomitant]
  3. METHADONE HCL [Concomitant]
  4. EFFEXOR [Concomitant]

REACTIONS (4)
  - CRYING [None]
  - EXCORIATION [None]
  - OEDEMA PERIPHERAL [None]
  - PAIN [None]
